FAERS Safety Report 6750508-9 (Version None)
Quarter: 2010Q2

REPORT INFORMATION
  Report Type: 
  Country: None (occurrence: None)
  Receive Date: 20100527
  Receipt Date: 20100519
  Transmission Date: 20101027
  Serious: Yes (Hospitalization)
  Sender: FDA-Public Use
  Company Number: IND1-FR-2010-0048

PATIENT
  Age: 37 Year
  Sex: Female

DRUGS (5)
  1. CHRONO-INDOCID         (INDOMETACIN)         (INDOMETACIN) [Suspect]
     Indication: ARTHRITIS
     Dosage: 75 MG, PER ORAL
     Route: 048
  2. SALAZOPYRINE (SULFASALAZINE)  (SULFASALAZINE) [Suspect]
     Indication: ARTHRITIS
     Dosage: 500 MG; ORAL
     Route: 048
     Dates: start: 20090710
  3. LANTUS (INSULIN GLARGINE) (INSULIN GLARGINE) [Concomitant]
  4. NOVORAPID (INSULIN ASPART) (INSULIN ASPART) [Concomitant]
  5. MERCILON (ETHINYLESTRADIOL, DESOGESTREL) (ETHINYLESTRADIOL, DESOGESTRE [Concomitant]

REACTIONS (5)
  - ANAEMIA [None]
  - ASTHENIA [None]
  - DYSPEPSIA [None]
  - ERYTHEMA NODOSUM [None]
  - HEPATITIS ACUTE [None]
